FAERS Safety Report 8192270-1 (Version None)
Quarter: 2012Q1

REPORT INFORMATION
  Report Type: 
  Country: None (occurrence: None)
  Receive Date: 20120307
  Receipt Date: 20120228
  Transmission Date: 20120608
  Serious: Yes (Other)
  Sender: FDA-Public Use
  Company Number: US-ASTRAZENECA-2012SE14045

PATIENT
  Age: 57 Year
  Sex: Female

DRUGS (4)
  1. NEXIUM [Suspect]
     Indication: GASTROOESOPHAGEAL REFLUX DISEASE
     Route: 048
  2. SYMBICORT [Concomitant]
     Dosage: 160/4.5 MCG/ACT, 1 AEROSOL AS NEEDED
     Route: 055
     Dates: start: 20111220
  3. LORTAB [Concomitant]
  4. PREDNISONE [Concomitant]
     Dates: start: 20111201

REACTIONS (4)
  - CANCER PAIN [None]
  - EMPHYSEMA [None]
  - CHRONIC OBSTRUCTIVE PULMONARY DISEASE [None]
  - BACK PAIN [None]
